FAERS Safety Report 15172883 (Version 1)
Quarter: 2018Q3

REPORT INFORMATION
  Report Type: Spontaneous
  Country: US (occurrence: US)
  Receive Date: 20180720
  Receipt Date: 20180720
  Transmission Date: 20181010
  Serious: Yes (Other)
  Sender: FDA-Public Use
  Company Number: US-ROCHE-2063320

PATIENT
  Age: 52 Year
  Sex: Female

DRUGS (7)
  1. DARUNAVIR [Concomitant]
     Active Substance: DARUNAVIR
  2. EMTRICITABINE [Concomitant]
     Active Substance: EMTRICITABINE
  3. AZITHROMYCIN ANHYDROUS. [Concomitant]
     Active Substance: AZITHROMYCIN ANHYDROUS
  4. SULFAMETHOXAZOLE/TRIMETHOPRIM [Concomitant]
     Active Substance: SULFAMETHOXAZOLE\TRIMETHOPRIM
     Route: 065
  5. TENOFOVIR [Concomitant]
     Active Substance: TENOFOVIR
  6. GANCICLOVIR. [Suspect]
     Active Substance: GANCICLOVIR
     Indication: ENCEPHALITIS CYTOMEGALOVIRUS
     Route: 042
  7. RITONAVIR. [Concomitant]
     Active Substance: RITONAVIR

REACTIONS (1)
  - Pancytopenia [Recovering/Resolving]
